FAERS Safety Report 25025786 (Version 1)
Quarter: 2025Q1

REPORT INFORMATION
  Report Type: Spontaneous
  Country: US (occurrence: US)
  Receive Date: 20250301
  Receipt Date: 20250301
  Transmission Date: 20250409
  Serious: No
  Sender: NOVO NORDISK
  Company Number: US-NOVOPROD-1217550

PATIENT
  Sex: Female

DRUGS (2)
  1. VICTOZA [Suspect]
     Active Substance: LIRAGLUTIDE
     Indication: Type 2 diabetes mellitus
     Route: 058
  2. VICTOZA [Suspect]
     Active Substance: LIRAGLUTIDE
     Indication: Decreased appetite
     Route: 058
     Dates: start: 202401, end: 202403

REACTIONS (7)
  - Increased appetite [Not Recovered/Not Resolved]
  - Nausea [Not Recovered/Not Resolved]
  - Product dispensing issue [Not Recovered/Not Resolved]
  - Multiple use of single-use product [Not Recovered/Not Resolved]
  - Product communication issue [Not Recovered/Not Resolved]
  - Product use complaint [Not Recovered/Not Resolved]
  - Product communication issue [Not Recovered/Not Resolved]
